FAERS Safety Report 6220556-6 (Version None)
Quarter: 2009Q2

REPORT INFORMATION
  Report Type: 
  Country: None (occurrence: None)
  Receive Date: 20090603
  Receipt Date: 20090525
  Transmission Date: 20091009
  Serious: Yes (Other)
  Sender: FDA-Public Use
  Company Number: CHPA2009US12325

PATIENT
  Age: 18 Year
  Sex: Male

DRUGS (1)
  1. CAFFEINE  (CAFFEINE) [Suspect]
     Dosage: 10 GRAMS, ORAL
     Route: 048

REACTIONS (31)
  - ANXIETY [None]
  - ARRHYTHMIA [None]
  - BLOOD CAFFEINE INCREASED [None]
  - BLOOD PH DECREASED [None]
  - BLOOD PRESSURE DECREASED [None]
  - BRADYCARDIA [None]
  - CARDIAC DISORDER [None]
  - DEPRESSED LEVEL OF CONSCIOUSNESS [None]
  - DIALYSIS [None]
  - DRUG LEVEL DECREASED [None]
  - DRUG SCREEN POSITIVE [None]
  - ELECTROCARDIOGRAM ABNORMAL [None]
  - ELECTROCARDIOGRAM QRS COMPLEX PROLONGED [None]
  - ELECTROCARDIOGRAM QT PROLONGED [None]
  - ELECTROCARDIOGRAM ST-T SEGMENT ABNORMAL [None]
  - GLYCOSURIA [None]
  - HAEMODYNAMIC INSTABILITY [None]
  - HYPERHIDROSIS [None]
  - HYPOKALAEMIA [None]
  - INAPPROPRIATE AFFECT [None]
  - KETONURIA [None]
  - LEUKOCYTOSIS [None]
  - MENTAL STATUS CHANGES [None]
  - NAUSEA [None]
  - PULSE ABSENT [None]
  - RESPIRATORY RATE INCREASED [None]
  - SUICIDE ATTEMPT [None]
  - TACHYCARDIA [None]
  - TREATMENT NONCOMPLIANCE [None]
  - URINE KETONE BODY PRESENT [None]
  - VOMITING [None]
